FAERS Safety Report 10888352 (Version 1)
Quarter: 2015Q1

REPORT INFORMATION
  Report Type: Spontaneous
  Country: IN (occurrence: IN)
  Receive Date: 20150305
  Receipt Date: 20150305
  Transmission Date: 20150721
  Serious: Yes (Other)
  Sender: FDA-Public Use
  Company Number: IN-ALKEM-000902

PATIENT
  Age: 50 Year

DRUGS (1)
  1. AMLODIPINE [Suspect]
     Active Substance: AMLODIPINE BESYLATE
     Indication: HYPERTENSION

REACTIONS (3)
  - Gingival bleeding [Unknown]
  - Alveolar bone resorption [Recovered/Resolved]
  - Gingival hyperplasia [Recovered/Resolved]
